FAERS Safety Report 9772026 (Version 1)
Quarter: 2013Q4

REPORT INFORMATION
  Report Type: Report from Study
  Country: CA (occurrence: CA)
  Receive Date: 20131219
  Receipt Date: 20131219
  Transmission Date: 20140711
  Serious: No
  Sender: FDA-Public Use
  Company Number: CA-UCBSA-105851

PATIENT
  Age: 60 Year
  Sex: Female

DRUGS (13)
  1. CIMZIA [Suspect]
     Indication: RHEUMATOID ARTHRITIS
     Dosage: 400 MG; NO OF DOSES RECEIVED: 2
     Route: 058
     Dates: start: 20121009, end: 20121023
  2. FOLIC ACID [Concomitant]
     Indication: VITAMIN SUPPLEMENTATION
     Dosage: 5 MG QS
     Dates: start: 20120926, end: 20121127
  3. FUCIDIN [Concomitant]
     Indication: FURUNCLE
     Dosage: 1 APP QD
     Dates: start: 2002
  4. ACETAMINOPHEN [Concomitant]
     Indication: ARTHRALGIA
     Dosage: QD
     Dates: start: 2008
  5. ACETAMINOPHEN [Concomitant]
     Indication: HEADACHE
     Dosage: QD
     Dates: start: 2008
  6. LOPRESSOR [Concomitant]
     Indication: PALPITATIONS
     Dates: start: 2007
  7. IMOVANE [Concomitant]
     Indication: SLEEP DISORDER
     Dosage: 5 MG BED
     Dates: start: 2002
  8. GLUCOSAMINE [Concomitant]
     Indication: NUTRITIONAL SUPPLEMENTATION
     Dates: start: 1997
  9. COLLAGEN [Concomitant]
     Indication: NUTRITIONAL SUPPLEMENTATION
     Dates: start: 2009
  10. VITAMIN D [Concomitant]
     Indication: VITAMIN SUPPLEMENTATION
     Dates: start: 2009
  11. VITAMIN C [Concomitant]
     Indication: VITAMIN SUPPLEMENTATION
     Dates: start: 2007
  12. NEXIUM [Concomitant]
     Indication: DYSPEPSIA
     Dosage: QD
     Dates: start: 20040708
  13. METHOTREXATE [Concomitant]
     Indication: RHEUMATOID ARTHRITIS
     Dosage: 2.5 MG QS
     Dates: start: 20120925, end: 20121127

REACTIONS (1)
  - Basal cell carcinoma [Recovering/Resolving]
